FAERS Safety Report 16897787 (Version 1)
Quarter: 2019Q4

REPORT INFORMATION
  Report Type: Spontaneous
  Country: DE (occurrence: DE)
  Receive Date: 20191009
  Receipt Date: 20191009
  Transmission Date: 20200122
  Serious: Yes (Hospitalization)
  Sender: FDA-Public Use
  Company Number: DE-TEVA-2019-DE-1119029

PATIENT
  Age: 45 Year
  Sex: Male

DRUGS (6)
  1. ALPRAZOLAM. [Suspect]
     Active Substance: ALPRAZOLAM
     Dosage: 4 MILLIGRAM DAILY; ORAL, 4 MILLIGRAM PER DAY, DURING THE LAST 9 MONTHS
     Route: 048
  2. CLONAZEPAM. [Interacting]
     Active Substance: CLONAZEPAM
     Route: 048
  3. ST. JOHN^S WORT [Interacting]
     Active Substance: ST. JOHN^S WORT
     Dosage: THREE TIMES A DAY
     Route: 065
  4. ALPRAZOLAM. [Suspect]
     Active Substance: ALPRAZOLAM
     Dosage: STARTED AFTER AN EMERGENCY LANDING OF HIS AIR PLANE AFTER IT CAUGHT FIRE (STARTING DOSE NOT STATED)
     Route: 048
  5. ST. JOHN^S WORT [Interacting]
     Active Substance: ST. JOHN^S WORT
     Indication: WITHDRAWAL SYNDROME
     Dosage: 900 MG FOR AT LEAST THREE MONTHS PRIOR TO HOSPITALISATION
     Route: 065
  6. CLONAZEPAM. [Interacting]
     Active Substance: CLONAZEPAM
     Indication: WITHDRAWAL SYNDROME
     Route: 048

REACTIONS (8)
  - Withdrawal syndrome [Recovered/Resolved]
  - Tremor [Recovered/Resolved]
  - Benzodiazepine drug level decreased [Recovered/Resolved]
  - Off label use [Recovered/Resolved]
  - Tachycardia [Recovered/Resolved]
  - Drug interaction [Recovered/Resolved]
  - Drug abuse [Recovered/Resolved]
  - Drug use disorder [Recovered/Resolved]
